FAERS Safety Report 6644325-8 (Version None)
Quarter: 2010Q1

REPORT INFORMATION
  Report Type: 
  Country: None (occurrence: None)
  Receive Date: 20100322
  Receipt Date: 20100310
  Transmission Date: 20100710
  Serious: Yes (Other)
  Sender: FDA-Public Use
  Company Number: US-MYLANLABS-2010S1000653

PATIENT
  Age: 67 Year
  Sex: Female
  Weight: 53.6 kg

DRUGS (10)
  1. LEVETIRACETAM [Suspect]
     Indication: CONVULSION
     Route: 048
     Dates: start: 20081209, end: 20090306
  2. LEVETIRACETAM [Suspect]
     Route: 048
     Dates: start: 20090529, end: 20090714
  3. KEPPRA [Suspect]
     Indication: CONVULSION
     Route: 048
     Dates: start: 20080619, end: 20081209
  4. KEPPRA [Suspect]
     Route: 048
     Dates: start: 20090306, end: 20090329
  5. KEPPRA [Suspect]
     Route: 048
     Dates: start: 20090714
  6. MULTI-VITAMINS [Concomitant]
     Dosage: SHAKLEE BRAND VITALIZER GOLD, NUTRIFERON, CHEWABLE CAL MAG PLUS
     Dates: start: 19940101
  7. AMOXICILLIN [Concomitant]
     Indication: SINUSITIS
  8. TERBINAFINE [Concomitant]
     Indication: ONYCHOMYCOSIS
  9. SOY [Concomitant]
  10. CAL-MAG /01623301/ [Concomitant]

REACTIONS (23)
  - ABNORMAL LOSS OF WEIGHT [None]
  - AGITATION [None]
  - ANGER [None]
  - ANXIETY [None]
  - CONVULSION [None]
  - DRUG INEFFECTIVE FOR UNAPPROVED INDICATION [None]
  - ENERGY INCREASED [None]
  - EXPOSURE TO TOXIC AGENT [None]
  - EYES SUNKEN [None]
  - FEELING ABNORMAL [None]
  - HEADACHE [None]
  - INSOMNIA [None]
  - MOOD SWINGS [None]
  - MUSCLE ATROPHY [None]
  - NASAL DISCOMFORT [None]
  - NAUSEA [None]
  - PAROSMIA [None]
  - PERSONALITY CHANGE [None]
  - POLLAKIURIA [None]
  - SALIVARY HYPERSECRETION [None]
  - SKIN ODOUR ABNORMAL [None]
  - TACHYPHRENIA [None]
  - TREMOR [None]
